FAERS Safety Report 26116862 (Version 1)
Quarter: 2025Q4

REPORT INFORMATION
  Report Type: Spontaneous
  Country: US (occurrence: None)
  Receive Date: 20251203
  Receipt Date: 20251203
  Transmission Date: 20260117
  Serious: Yes (Hospitalization)
  Sender: FDA-CTU
  Company Number: None

PATIENT
  Sex: Female

DRUGS (11)
  1. LENALIDOMIDE [Suspect]
     Active Substance: LENALIDOMIDE
     Indication: Plasma cell myeloma
     Dosage: FREQUENCY : AS DIRECTED;?
     Route: 048
     Dates: start: 20250912
  2. ACETAMINOPHEN [Concomitant]
     Active Substance: ACETAMINOPHEN
  3. ALBUTEROL [Concomitant]
     Active Substance: ALBUTEROL
  4. AMLODIPINE [Concomitant]
     Active Substance: AMLODIPINE BESYLATE
  5. ASPIRIN [Concomitant]
     Active Substance: ASPIRIN
  6. D3-1000 [Concomitant]
  7. GABAPENTI N [Concomitant]
  8. HYDRALAZINE [Concomitant]
     Active Substance: HYDRALAZINE HYDROCHLORIDE
  9. KLOR-CON M20 [Concomitant]
     Active Substance: POTASSIUM CHLORIDE
  10. LIDODERM [Concomitant]
     Active Substance: LIDOCAINE
  11. LOPERAMIDE [Concomitant]
     Active Substance: LOPERAMIDE

REACTIONS (1)
  - Gout [None]
